FAERS Safety Report 7492192-5 (Version None)
Quarter: 2011Q2

REPORT INFORMATION
  Report Type: 
  Country: None (occurrence: None)
  Receive Date: 20110519
  Receipt Date: 20101028
  Transmission Date: 20111010
  Serious: No
  Sender: FDA-Public Use
  Company Number: US-NOVEN-ALL1-2010-05634

PATIENT
  Sex: Male
  Weight: 29.478 kg

DRUGS (2)
  1. DAYTRANA [Suspect]
     Dosage: 15 MG, 1X/DAY:QD
     Route: 062
     Dates: start: 20100901, end: 20100101
  2. DAYTRANA [Suspect]
     Dosage: UNK MG, HALF OF A CUT 15 MG PATCH 1X/DAY:QD
     Route: 062
     Dates: start: 20100101

REACTIONS (4)
  - ABDOMINAL DISCOMFORT [None]
  - LETHARGY [None]
  - WRONG TECHNIQUE IN DRUG USAGE PROCESS [None]
  - DRUG PRESCRIBING ERROR [None]
